FAERS Safety Report 8541767-0 (Version None)
Quarter: 2012Q3

REPORT INFORMATION
  Report Type: 
  Country: None (occurrence: None)
  Receive Date: 20120726
  Receipt Date: 20120130
  Transmission Date: 20120928
  Serious: No
  Sender: FDA-Public Use
  Company Number: US-ASTRAZENECA-2011SE53733

PATIENT
  Age: 58 Year
  Sex: Female
  Weight: 119.7 kg

DRUGS (3)
  1. SEROQUEL [Suspect]
     Indication: SCHIZOPHRENIA
     Route: 048
  2. GEODON [Concomitant]
  3. SEROQUEL [Suspect]
     Route: 048

REACTIONS (5)
  - AFFECT LABILITY [None]
  - VISUAL ACUITY REDUCED [None]
  - HALLUCINATION, AUDITORY [None]
  - DIABETES MELLITUS [None]
  - DRUG DOSE OMISSION [None]
